FAERS Safety Report 18857129 (Version 2)
Quarter: 2021Q1

REPORT INFORMATION
  Report Type: Spontaneous
  Country: BR (occurrence: BR)
  Receive Date: 20210208
  Receipt Date: 20210222
  Transmission Date: 20210420
  Serious: Yes (Death, Other)
  Sender: FDA-Public Use
  Company Number: BR-PFIZER INC-2021076592

PATIENT
  Age: 83 Year
  Sex: Female
  Weight: 72.5 kg

DRUGS (2)
  1. ZYVOX [Suspect]
     Active Substance: LINEZOLID
     Indication: ANTIBIOTIC THERAPY
     Dosage: 600 MG EVERY 12 HOURS
     Route: 042
     Dates: start: 20201116, end: 20201125
  2. HEPAMAX S [Suspect]
     Active Substance: HEPARIN SODIUM
     Indication: ANTICOAGULANT THERAPY
     Dosage: 5 ML PER DAY
     Route: 042
     Dates: start: 20201111, end: 20201130

REACTIONS (8)
  - Pneumomediastinum [Fatal]
  - Atrial fibrillation [Fatal]
  - Cardiac failure [Fatal]
  - Shock [Fatal]
  - Acute kidney injury [Fatal]
  - Respiratory failure [Fatal]
  - Thrombocytopenia [Fatal]
  - Pneumoperitoneum [Fatal]

NARRATIVE: CASE EVENT DATE: 20201123
